FAERS Safety Report 10143703 (Version 1)
Quarter: 2014Q2

REPORT INFORMATION
  Report Type: Spontaneous
  Country: US (occurrence: US)
  Receive Date: 20140430
  Receipt Date: 20140430
  Transmission Date: 20141212
  Serious: Yes (Other)
  Sender: FDA-Public Use
  Company Number: US-PFIZER INC-2014115345

PATIENT
  Age: 34 Year
  Sex: Female
  Weight: 65.76 kg

DRUGS (1)
  1. RELPAX [Suspect]
     Indication: MIGRAINE
     Dosage: 40 MG, AS NEEDED

REACTIONS (5)
  - Migraine [Unknown]
  - Nausea [Unknown]
  - Activities of daily living impaired [Unknown]
  - Photosensitivity reaction [Unknown]
  - Hyperacusis [Unknown]
